FAERS Safety Report 15238638 (Version 1)
Quarter: 2018Q4

REPORT INFORMATION
  Report Type: Spontaneous
  Country: DK (occurrence: DK)
  Receive Date: 20180803
  Receipt Date: 20180803
  Transmission Date: 20190204
  Serious: Yes (Hospitalization, Disabling)
  Sender: FDA-Public Use
  Company Number: DK-AUROBINDO-AUR-APL-2018-040422

PATIENT
  Sex: Female

DRUGS (3)
  1. GARDASIL [Suspect]
     Active Substance: HUMAN PAPILLOMAVIRUS QUADRIVALENT (TYPES 6, 11, 16, AND 18) VACCINE, RECOMBINANT
     Indication: HUMAN PAPILLOMA VIRUS IMMUNISATION
     Dosage: 1 DOSAGE FORM
     Route: 030
     Dates: start: 20080430, end: 20090501
  2. SERTRALINE [Suspect]
     Active Substance: SERTRALINE HYDROCHLORIDE
     Indication: ANXIETY
     Dosage: UNK
     Route: 065
     Dates: start: 201411
  3. CITALOPRAM [Suspect]
     Active Substance: CITALOPRAM HYDROBROMIDE
     Indication: DEPRESSION
     Dosage: 40 MILLIGRAM, ONCE A DAY
     Dates: start: 200810, end: 201306

REACTIONS (17)
  - Blood pressure fluctuation [Unknown]
  - Muscle tightness [Unknown]
  - Hyperhidrosis [Unknown]
  - Small fibre neuropathy [Unknown]
  - Autonomic nervous system imbalance [Unknown]
  - Urinary tract discomfort [Unknown]
  - Headache [Not Recovered/Not Resolved]
  - Dizziness postural [Unknown]
  - Feeling of body temperature change [Unknown]
  - Defaecation disorder [Unknown]
  - Palpitations [Unknown]
  - Dizziness [Not Recovered/Not Resolved]
  - Sinus tachycardia [Unknown]
  - Confusional state [Unknown]
  - Arthralgia [Not Recovered/Not Resolved]
  - Visual impairment [Unknown]
  - Heart rate irregular [Unknown]

NARRATIVE: CASE EVENT DATE: 2014
